FAERS Safety Report 23576627 (Version 1)
Quarter: 2024Q1

REPORT INFORMATION
  Report Type: Report from Study
  Country: MX (occurrence: None)
  Receive Date: 20240228
  Receipt Date: 20240228
  Transmission Date: 20240410
  Serious: Yes (Hospitalization, Other)
  Sender: FDA-Public Use
  Company Number: 2024A045497

PATIENT
  Age: 997 Month
  Sex: Female

DRUGS (1)
  1. DAPAGLIFLOZIN [Suspect]
     Active Substance: DAPAGLIFLOZIN
     Indication: Cardiac failure
     Route: 048
     Dates: start: 20231226

REACTIONS (11)
  - Seizure [Recovered/Resolved]
  - Dyspnoea [Recovered/Resolved]
  - Left ventricular hypertrophy [Recovered/Resolved]
  - Angina unstable [Recovered/Resolved]
  - Pulmonary oedema [Recovered/Resolved]
  - Limb injury [Recovered/Resolved]
  - Necrosis [Recovered/Resolved]
  - Blood potassium increased [Recovered/Resolved]
  - Cardiac failure [Unknown]
  - Hypertension [Unknown]
  - Mastication disorder [Unknown]

NARRATIVE: CASE EVENT DATE: 20240201
